FAERS Safety Report 8932721 (Version 2)
Quarter: 2012Q4

REPORT INFORMATION
  Report Type: 
  Country: DE (occurrence: JP)
  Receive Date: 20121129
  Receipt Date: 20121214
  Transmission Date: 20130627
  Serious: Yes (Hospitalization)
  Sender: FDA-Public Use
  Company Number: JP-BRISTOL-MYERS SQUIBB COMPANY-17145186

PATIENT
  Age: 73 Year
  Sex: Male
  Weight: 50 kg

DRUGS (3)
  1. ERBITUX SOLN FOR INF 5MG/ML [Suspect]
     Indication: COLORECTAL CANCER RECURRENT
     Dosage: 1st course 1 in 1 week(3Oct12-unk)
2nd course 1 in 1 day(382mg);24Oct12-24Oct12.
     Route: 041
     Dates: start: 20121003
  2. TS-1 [Suspect]
     Indication: COLORECTAL CANCER RECURRENT
     Dosage: 1st course (1 in 1 day)on 3Oct12
2nd Course 100 mg(1 in 1 day) 24Oct12-30Oct12(6 days).
     Route: 048
     Dates: start: 20121003
  3. OXALIPLATIN [Concomitant]
     Indication: COLORECTAL CANCER RECURRENT
     Dosage: 1st course
2nd course (198mg)24Oct12-24Oct12.
     Route: 041
     Dates: start: 20121003

REACTIONS (2)
  - Perirectal abscess [Recovering/Resolving]
  - Intestinal perforation [Recovering/Resolving]
